FAERS Safety Report 4655521-3 (Version None)
Quarter: 2005Q2

REPORT INFORMATION
  Report Type: 
  Country: None (occurrence: None)
  Receive Date: 20050505
  Receipt Date: 20050414
  Transmission Date: 20051028
  Serious: Yes (Other)
  Sender: FDA-Public Use
  Company Number: 800324

PATIENT
  Sex: Female

DRUGS (7)
  1. DIANEAL [Suspect]
     Indication: RENAL FAILURE CHRONIC
     Dates: start: 20030801
  2. NEPHROVITE [Concomitant]
  3. RENAGEL [Concomitant]
  4. PHOSLO [Concomitant]
  5. FLORINEF ACETATE [Concomitant]
  6. ALLOPURINOL [Concomitant]
  7. SODIUM BICARBONATE [Concomitant]

REACTIONS (7)
  - DIARRHOEA [None]
  - HAEMODIALYSIS [None]
  - NAUSEA [None]
  - NEISSERIA INFECTION [None]
  - PERITONITIS [None]
  - PHARMACEUTICAL PRODUCT COMPLAINT [None]
  - VOMITING [None]
